FAERS Safety Report 6661269-6 (Version None)
Quarter: 2010Q1

REPORT INFORMATION
  Report Type: 
  Country: None (occurrence: None)
  Receive Date: 20100331
  Receipt Date: 20100312
  Transmission Date: 20100710
  Serious: Yes (Death, Hospitalization, Other)
  Sender: FDA-Public Use
  Company Number: US-AMGEN-KDC402333

PATIENT
  Age: 63 Year
  Sex: Female

DRUGS (5)
  1. NEULASTA [Suspect]
     Indication: BREAST CANCER
     Route: 058
     Dates: start: 20090918, end: 20091107
  2. DOXORUBICIN HCL [Suspect]
     Route: 042
     Dates: start: 20090918, end: 20091106
  3. CYCLOPHOSPHAMIDE [Suspect]
     Route: 042
     Dates: start: 20090918, end: 20091106
  4. PACLITAXEL [Suspect]
     Route: 042
     Dates: start: 20090918
  5. BEVACIZUMAB [Suspect]
     Route: 042
     Dates: start: 20090918, end: 20091106

REACTIONS (14)
  - CAECITIS [None]
  - CLOSTRIDIAL INFECTION [None]
  - COLITIS [None]
  - CONFUSIONAL STATE [None]
  - DEHYDRATION [None]
  - FALL [None]
  - GASTROINTESTINAL NECROSIS [None]
  - GENERAL PHYSICAL HEALTH DETERIORATION [None]
  - INTESTINAL ISCHAEMIA [None]
  - NEUTROPHIL COUNT DECREASED [None]
  - PYREXIA [None]
  - RESTLESSNESS [None]
  - UNRESPONSIVE TO STIMULI [None]
  - WHITE BLOOD CELL COUNT DECREASED [None]
